FAERS Safety Report 16157499 (Version 1)
Quarter: 2019Q2

REPORT INFORMATION
  Report Type: Spontaneous
  Country: US (occurrence: US)
  Receive Date: 20190301
  Receipt Date: 20190301
  Transmission Date: 20190711
  Serious: No
  Sender: FDA-Public Use
  Company Number: None

PATIENT
  Sex: Male
  Weight: 95.25 kg

DRUGS (1)
  1. ORGANIC FULL SPECTRUM 802 HEMP OIL [Suspect]
     Active Substance: CANNABIS SATIVA SEED OIL
     Indication: PAIN
     Dosage: ?          OTHER FREQUENCY:7 DAYS ;?
     Route: 048
     Dates: start: 20190111, end: 20190118

REACTIONS (3)
  - Exposure to mould [None]
  - Bronchiectasis [None]
  - Exposure to toxic agent [None]
